FAERS Safety Report 15674168 (Version 1)
Quarter: 2018Q4

REPORT INFORMATION
  Report Type: Spontaneous
  Country: US (occurrence: US)
  Receive Date: 20181130
  Receipt Date: 20181130
  Transmission Date: 20190205
  Serious: No
  Sender: FDA-Public Use
  Company Number: US-ASTRAZENECA-2018SF53977

PATIENT
  Age: 9 Year
  Sex: Female

DRUGS (1)
  1. SYNAGIS [Suspect]
     Active Substance: PALIVIZUMAB
     Indication: PRODUCT USED FOR UNKNOWN INDICATION
     Dosage: DOSE UNKNOWN, UNKNOWN FREQUENCY UNKNOWN
     Route: 030

REACTIONS (3)
  - Gastrooesophageal reflux disease [Unknown]
  - Bronchitis [Unknown]
  - General physical health deterioration [Unknown]
